FAERS Safety Report 7369424-7 (Version None)
Quarter: 2011Q1

REPORT INFORMATION
  Report Type: 
  Country: None (occurrence: None)
  Receive Date: 20110321
  Receipt Date: 20110321
  Transmission Date: 20110831
  Serious: Yes (Hospitalization)
  Sender: FDA-Public Use
  Company Number: None

PATIENT
  Age: 66 Year
  Sex: Female
  Weight: 62 kg

DRUGS (10)
  1. FLUOXETINE [Concomitant]
  2. EYEDROPS [Concomitant]
  3. ALBUTEROL INHALER [Concomitant]
  4. OXYCODONE [Concomitant]
  5. CETUXIMAB [Suspect]
     Indication: HEAD AND NECK CANCER
     Dosage: 400 MG/M2, LOADING, IV ; 250 MG/M2, IV
     Route: 042
     Dates: start: 20101206, end: 20110221
  6. CETUXIMAB [Suspect]
     Indication: SMALL CELL LUNG CANCER STAGE UNSPECIFIED
     Dosage: 400 MG/M2, LOADING, IV ; 250 MG/M2, IV
     Route: 042
     Dates: start: 20101206, end: 20110221
  7. CETUXIMAB [Suspect]
     Indication: HEAD AND NECK CANCER
     Dosage: 400 MG/M2, LOADING, IV ; 250 MG/M2, IV
     Route: 042
     Dates: start: 20101129
  8. CETUXIMAB [Suspect]
     Indication: SMALL CELL LUNG CANCER STAGE UNSPECIFIED
     Dosage: 400 MG/M2, LOADING, IV ; 250 MG/M2, IV
     Route: 042
     Dates: start: 20101129
  9. SENNA S [Concomitant]
  10. FLUOXETINE [Concomitant]

REACTIONS (1)
  - POST PROCEDURAL HAEMORRHAGE [None]
